FAERS Safety Report 8471139-9 (Version None)
Quarter: 2012Q2

REPORT INFORMATION
  Report Type: 
  Country: None (occurrence: None)
  Receive Date: 20120627
  Receipt Date: 20120621
  Transmission Date: 20120825
  Serious: Yes (Other)
  Sender: FDA-Public Use
  Company Number: DE-BAYER-2012-057361

PATIENT
  Age: 50 Year
  Sex: Female

DRUGS (1)
  1. MIRENA [Suspect]
     Dosage: 20 MCG/24HR, CONT
     Route: 015
     Dates: start: 20100113, end: 20120516

REACTIONS (3)
  - METRORRHAGIA [None]
  - DEVICE BREAKAGE [None]
  - DEVICE DISLOCATION [None]
